FAERS Safety Report 7035380-4 (Version None)
Quarter: 2010Q4

REPORT INFORMATION
  Report Type: 
  Country: None (occurrence: None)
  Receive Date: 20101008
  Receipt Date: 20100921
  Transmission Date: 20110411
  Serious: Yes (Other)
  Sender: FDA-Public Use
  Company Number: PHHY2010BR64970

PATIENT
  Age: 56 Year
  Sex: Male

DRUGS (7)
  1. DIOVAN AMLO FIX [Suspect]
     Dosage: COATED TABLET (320/5 MG)
     Dates: start: 20100709
  2. METFORMIN [Suspect]
  3. DIOVAN [Suspect]
     Dosage: 160 MG
  4. INDAPAMIDE [Concomitant]
  5. ROSUVASTATIN [Concomitant]
  6. CLOPIDOGREL [Concomitant]
  7. ACETYLSALICYLIC ACID SRT [Concomitant]

REACTIONS (7)
  - BLOOD CHOLESTEROL INCREASED [None]
  - BLOOD GLUCOSE INCREASED [None]
  - BLOOD PRESSURE INADEQUATELY CONTROLLED [None]
  - BLOOD TRIGLYCERIDES INCREASED [None]
  - CORONARY ANGIOPLASTY [None]
  - CORONARY ARTERY DISEASE [None]
  - HYPOPERFUSION [None]
